FAERS Safety Report 6072974-7 (Version None)
Quarter: 2009Q1

REPORT INFORMATION
  Report Type: 
  Country: None (occurrence: None)
  Receive Date: 20090206
  Receipt Date: 20090121
  Transmission Date: 20090719
  Serious: Yes (Hospitalization)
  Sender: FDA-Public Use
  Company Number: APP200900028

PATIENT
  Age: 36 Year
  Sex: Female

DRUGS (1)
  1. FLUOROURACIL INJ [Suspect]
     Indication: ACCIDENTAL EXPOSURE
     Dosage: ONCE, INHALATION
     Route: 055
     Dates: start: 20081004, end: 20081004

REACTIONS (8)
  - ACCIDENTAL EXPOSURE [None]
  - CEREBRAL INFARCTION [None]
  - CEREBROVASCULAR ACCIDENT [None]
  - EYE IRRITATION [None]
  - HEADACHE [None]
  - NASAL DISCOMFORT [None]
  - PRODUCT QUALITY ISSUE [None]
  - STOMATITIS [None]
